FAERS Safety Report 4537718-6 (Version None)
Quarter: 2004Q4

REPORT INFORMATION
  Report Type: 
  Country: None (occurrence: None)
  Receive Date: 20041224
  Receipt Date: 20041216
  Transmission Date: 20050328
  Serious: Yes (Hospitalization)
  Sender: FDA-Public Use
  Company Number: US-MERCK-0412USA02125

PATIENT
  Age: 73 Year
  Sex: Male
  Weight: 90 kg

DRUGS (10)
  1. VIOXX [Suspect]
     Route: 048
     Dates: start: 20031105
  2. VIOXX [Suspect]
     Route: 065
     Dates: start: 20041208
  3. FLONASE [Concomitant]
     Route: 065
     Dates: start: 20031105
  4. [THERAPY UNSPECIFIED] [Concomitant]
     Route: 065
     Dates: start: 20031105
  5. INDERAL [Concomitant]
     Route: 065
     Dates: start: 20031105
  6. [THERAPY UNSPECIFIED] [Concomitant]
     Route: 065
     Dates: start: 20031105
  7. FIORICET TABLETS [Concomitant]
     Route: 065
     Dates: start: 20031105
  8. PREVACID [Concomitant]
     Route: 065
  9. TRENTAL [Concomitant]
     Route: 065
  10. HYDROCHLOROTHIAZIDE [Concomitant]
     Route: 065

REACTIONS (11)
  - CELLULITIS [None]
  - CHEST PAIN [None]
  - DEEP VEIN THROMBOSIS [None]
  - DYSPNOEA [None]
  - EPISTAXIS [None]
  - FATIGUE [None]
  - GASTRITIS [None]
  - INSOMNIA [None]
  - OSTEOARTHRITIS [None]
  - RESPIRATORY DISORDER [None]
  - SINUSITIS [None]
